FAERS Safety Report 17760321 (Version 1)
Quarter: 2020Q2

REPORT INFORMATION
  Report Type: Spontaneous
  Country: US (occurrence: US)
  Receive Date: 20200507
  Receipt Date: 20200507
  Transmission Date: 20200714
  Serious: Yes (Hospitalization)
  Sender: FDA-Public Use
  Company Number: None

PATIENT
  Age: 57 Year
  Sex: Female

DRUGS (11)
  1. CALCIUM+D [Concomitant]
     Active Substance: CALCIUM\VITAMIN D
  2. ATORVASTATIN [Concomitant]
     Active Substance: ATORVASTATIN
  3. PREDNISONE. [Concomitant]
     Active Substance: PREDNISONE
  4. HYDROCO/APAP [Concomitant]
     Active Substance: ACETAMINOPHEN\HYDROCODONE
  5. IBUPROFEN. [Concomitant]
     Active Substance: IBUPROFEN
  6. LINSINOPRIL [Concomitant]
     Active Substance: LISINOPRIL
  7. METHOTREXATE. [Concomitant]
     Active Substance: METHOTREXATE
  8. NASONEX [Concomitant]
     Active Substance: MOMETASONE FUROATE
  9. XELJANZ XR [Suspect]
     Active Substance: TOFACITINIB CITRATE
     Indication: RHEUMATOID ARTHRITIS
     Route: 048
     Dates: start: 20171029
  10. ALLEGRA-D [Concomitant]
     Active Substance: FEXOFENADINE\PSEUDOEPHEDRINE
  11. ARAVA [Concomitant]
     Active Substance: LEFLUNOMIDE

REACTIONS (3)
  - COVID-19 [None]
  - Influenza like illness [None]
  - Dyspnoea [None]

NARRATIVE: CASE EVENT DATE: 202004
